FAERS Safety Report 5989569-3 (Version None)
Quarter: 2008Q4

REPORT INFORMATION
  Report Type: 
  Country: None (occurrence: None)
  Receive Date: 20081208
  Receipt Date: 20081125
  Transmission Date: 20090506
  Serious: Yes (Hospitalization)
  Sender: FDA-Public Use
  Company Number: 232305K08USA

PATIENT
  Age: 45 Year
  Sex: Female
  Weight: 170 kg

DRUGS (2)
  1. REBIF [Suspect]
     Indication: MULTIPLE SCLEROSIS
     Dosage: 44 MCG, 3 IN  1 WEEKS, SUBCUTANEOUS
     Route: 058
     Dates: start: 20040716, end: 20081115
  2. TYLENOL (COTYLENOL) [Concomitant]

REACTIONS (5)
  - ABDOMINAL HERNIA OBSTRUCTIVE [None]
  - ANOREXIA [None]
  - INJECTION SITE ERYTHEMA [None]
  - INJECTION SITE PAIN [None]
  - WHITE BLOOD CELL COUNT INCREASED [None]
